FAERS Safety Report 7462072-X (Version None)
Quarter: 2011Q2

REPORT INFORMATION
  Report Type: 
  Country: None (occurrence: None)
  Receive Date: 20110506
  Receipt Date: 20110427
  Transmission Date: 20111010
  Serious: Yes (Hospitalization)
  Sender: FDA-Public Use
  Company Number: PHHY2011ES35636

PATIENT
  Age: 87 Year
  Sex: Female

DRUGS (6)
  1. NORVASC [Concomitant]
  2. OMEPRAZOL [Concomitant]
  3. PARACETAMOL [Concomitant]
     Dosage: UNK
     Route: 048
     Dates: start: 20091101
  4. HIDROSALURETIL [Concomitant]
     Indication: HYPERTENSION
     Dosage: UNK
     Route: 048
     Dates: start: 20100607, end: 20100611
  5. DIOVAN [Suspect]
     Indication: HYPERTENSION
     Dosage: 80 MG,
     Dates: end: 20100611
  6. DIGOXIN [Concomitant]
     Indication: ATRIAL FIBRILLATION
     Dosage: UNK
     Route: 048
     Dates: start: 20100611

REACTIONS (9)
  - ELECTROCARDIOGRAM REPOLARISATION ABNORMALITY [None]
  - BACTERIAL TEST POSITIVE [None]
  - BLOOD CREATININE INCREASED [None]
  - HYPOKALAEMIA [None]
  - ATRIAL FIBRILLATION [None]
  - HYPOTENSION [None]
  - DIZZINESS [None]
  - GASTROENTERITIS [None]
  - SYNCOPE [None]
